FAERS Safety Report 18957549 (Version 1)
Quarter: 2021Q1

REPORT INFORMATION
  Report Type: Spontaneous
  Country: US (occurrence: US)
  Receive Date: 20210302
  Receipt Date: 20210302
  Transmission Date: 20210420
  Serious: Yes (Other)
  Sender: FDA-Public Use
  Company Number: US-ALLERGAN-2035151US

PATIENT
  Age: 5 Decade
  Sex: Female

DRUGS (4)
  1. LORTAB [Suspect]
     Active Substance: ACETAMINOPHEN\HYDROCODONE BITARTRATE
     Indication: PAIN
     Dosage: UP TO 10S
  2. NORCO [Suspect]
     Active Substance: ACETAMINOPHEN\HYDROCODONE BITARTRATE
     Indication: PAIN
     Dosage: UNK
     Dates: end: 2018
  3. LORTAB [Suspect]
     Active Substance: ACETAMINOPHEN\HYDROCODONE BITARTRATE
     Dosage: LOW DOSE 2.5
  4. OXYCODON [Suspect]
     Active Substance: OXYCODONE
     Indication: PAIN
     Dosage: SAME DOSAGE INCREASES

REACTIONS (5)
  - Drug tolerance increased [Unknown]
  - Pain [Unknown]
  - Dependence [Unknown]
  - Overdose [Unknown]
  - Rebound effect [Unknown]
